FAERS Safety Report 8779554 (Version 2)
Quarter: 2012Q4

REPORT INFORMATION
  Report Type: Report from Study
  Country: DE (occurrence: DE)
  Receive Date: 20120912
  Receipt Date: 20120921
  Transmission Date: 20130627
  Serious: Yes (Hospitalization)
  Sender: FDA-Public Use
  Company Number: DE-ROCHE-1089492

PATIENT
  Age: 70 Year
  Sex: Female
  Weight: 76 kg

DRUGS (11)
  1. MABTHERA [Suspect]
     Indication: RHEUMATOID ARTHRITIS
     Route: 042
     Dates: start: 20120320
  2. RISPERIDON [Suspect]
     Indication: DEPRESSION
     Route: 048
     Dates: start: 201202
  3. PREDNISOLON [Concomitant]
     Indication: RHEUMATOID ARTHRITIS
     Route: 048
     Dates: start: 2008
  4. METAMIZOL [Concomitant]
     Indication: RHEUMATOID ARTHRITIS
     Route: 048
  5. CALCICARE [Concomitant]
     Indication: OSTEOPOROSIS
     Route: 048
     Dates: start: 200404
  6. PANTOZOL [Concomitant]
     Indication: PROPHYLAXIS AGAINST GASTROINTESTINAL ULCER
     Route: 048
     Dates: start: 200912
  7. CARBAMAZEPIN [Concomitant]
     Indication: EPILEPSY
     Route: 048
     Dates: start: 200812
  8. ZOPICLON [Concomitant]
     Indication: SLEEP DISORDER
     Route: 048
     Dates: start: 201010
  9. VITAMIN B12 [Concomitant]
     Route: 030
     Dates: start: 200912
  10. DEKRISTOL [Concomitant]
     Indication: OSTEOPOROSIS
     Route: 048
     Dates: start: 201112
  11. SPASMEX (GERMANY) [Concomitant]
     Indication: INCONTINENCE
     Route: 048
     Dates: start: 20120622

REACTIONS (8)
  - Hypotension [Unknown]
  - Syncope [Recovered/Resolved]
  - Disturbance in attention [Recovering/Resolving]
  - Dehydration [Recovered/Resolved]
  - Acute prerenal failure [Recovered/Resolved]
  - Hypercalcaemia [Recovered/Resolved]
  - Bronchitis [Recovered/Resolved]
  - Cystitis [Recovered/Resolved]
